FAERS Safety Report 15882748 (Version 1)
Quarter: 2019Q1

REPORT INFORMATION
  Report Type: Spontaneous
  Country: FR (occurrence: FR)
  Receive Date: 20190129
  Receipt Date: 20190129
  Transmission Date: 20190417
  Serious: Yes (Hospitalization)
  Sender: FDA-Public Use
  Company Number: FR-SUN PHARMACEUTICAL INDUSTRIES LTD-2019RR-197166

PATIENT
  Age: 34 Year
  Sex: Female
  Weight: 73 kg

DRUGS (3)
  1. OVITRELLE [Suspect]
     Active Substance: CHORIOGONADOTROPIN ALFA
     Indication: IN VITRO FERTILISATION
     Dosage: IN TOTAL
     Route: 058
     Dates: start: 20181103
  2. GONAL-F [Suspect]
     Active Substance: FOLLITROPIN
     Indication: IN VITRO FERTILISATION
     Route: 058
     Dates: start: 20181024, end: 20181103
  3. FYREMADEL [Suspect]
     Active Substance: GANIRELIX ACETATE
     Indication: IN VITRO FERTILISATION
     Dosage: 1 DOSAGE FORM, DAILY
     Route: 058
     Dates: start: 201810, end: 201811

REACTIONS (5)
  - Haematocrit increased [Recovered/Resolved]
  - Ascites [Recovered/Resolved]
  - Cough [Recovered/Resolved]
  - Alanine aminotransferase increased [Unknown]
  - Ovarian hyperstimulation syndrome [Recovered/Resolved]

NARRATIVE: CASE EVENT DATE: 20181107
